FAERS Safety Report 19076589 (Version 1)
Quarter: 2021Q1

REPORT INFORMATION
  Report Type: Spontaneous
  Country: CA (occurrence: CA)
  Receive Date: 20210331
  Receipt Date: 20210331
  Transmission Date: 20210420
  Serious: Yes (Other)
  Sender: FDA-Public Use
  Company Number: CA-ALXN-A202012177

PATIENT
  Sex: Female

DRUGS (1)
  1. SOLIRIS [Suspect]
     Active Substance: ECULIZUMAB
     Indication: NEUROMYELITIS OPTICA SPECTRUM DISORDER
     Dosage: INFUSION FOR ONE HOUR, TWICE IN A MONTH
     Route: 042
     Dates: start: 20200325

REACTIONS (4)
  - Rib fracture [Unknown]
  - Osteoporosis [Unknown]
  - Pelvic fracture [Unknown]
  - Blood glucose increased [Unknown]
